FAERS Safety Report 17605063 (Version 1)
Quarter: 2020Q1

REPORT INFORMATION
  Report Type: Spontaneous
  Country: DE (occurrence: DE)
  Receive Date: 20200331
  Receipt Date: 20200331
  Transmission Date: 20200409
  Serious: Yes (Hospitalization)
  Sender: FDA-Public Use
  Company Number: DE-ACCORD-177568

PATIENT
  Age: 61 Year
  Sex: Female
  Weight: 79.7 kg

DRUGS (5)
  1. DIMETINDENE/DIMETINDENE MALEATE [Concomitant]
     Indication: PREMEDICATION
     Dosage: ADMINISTRATION 4 HOURS BEFORE CARBOPLATIN ADMINISTRATION
     Route: 042
     Dates: start: 20191128
  2. GRANISETRON [Concomitant]
     Active Substance: GRANISETRON
     Indication: PREMEDICATION
     Dosage: ADMINISTRATION 4 HOURS BEFORE CARBOPLATIN ADMINISTRATION
     Route: 042
     Dates: start: 20191128
  3. PACLITAXEL. [Concomitant]
     Active Substance: PACLITAXEL
     Indication: OVARIAN CANCER RECURRENT
     Dosage: 334.2
     Route: 042
     Dates: start: 20191128
  4. CARBOPLATIN. [Suspect]
     Active Substance: CARBOPLATIN
     Indication: OVARIAN CANCER RECURRENT
     Dosage: 612.8 ACTIVE INGREDIENT DILUTED IN 500ML GLUCOSE 5%
     Route: 042
     Dates: start: 20191128
  5. DEXAMETHASONE. [Concomitant]
     Active Substance: DEXAMETHASONE
     Indication: PREMEDICATION
     Dosage: ADMINISTRATION 4 HOURS BEFORE CARBOPLATIN ADMINISTRATION STRENGTH: 20 MG
     Route: 042
     Dates: start: 20191128

REACTIONS (4)
  - Flushing [Recovering/Resolving]
  - Erythema [Recovering/Resolving]
  - Tachycardia [Recovering/Resolving]
  - Dyspnoea [Recovering/Resolving]

NARRATIVE: CASE EVENT DATE: 20191128
